FAERS Safety Report 21285106 (Version 2)
Quarter: 2022Q3

REPORT INFORMATION
  Report Type: Spontaneous
  Country: US (occurrence: US)
  Receive Date: 20220902
  Receipt Date: 20220906
  Transmission Date: 20221026
  Serious: No
  Sender: FDA-Public Use
  Company Number: US-JNJFOC-20220846066

PATIENT
  Age: 81 Year
  Sex: Female
  Weight: 65.376 kg

DRUGS (1)
  1. XARELTO [Suspect]
     Active Substance: RIVAROXABAN
     Indication: Cardiac failure congestive
     Route: 048

REACTIONS (7)
  - Asthenia [Unknown]
  - Myalgia [Unknown]
  - Gait inability [Unknown]
  - Tremor [Unknown]
  - Dizziness [Unknown]
  - Fall [Unknown]
  - Off label use [Unknown]
